FAERS Safety Report 13278752 (Version 3)
Quarter: 2017Q1

REPORT INFORMATION
  Report Type: Spontaneous
  Country: US (occurrence: US)
  Receive Date: 20170228
  Receipt Date: 20170320
  Transmission Date: 20170428
  Serious: No
  Sender: FDA-Public Use
  Company Number: US-PFIZER INC-2017079042

PATIENT
  Age: 82 Year
  Sex: Male
  Weight: 53 kg

DRUGS (3)
  1. LATANOPROST. [Suspect]
     Active Substance: LATANOPROST
     Indication: INTRAOCULAR PRESSURE TEST ABNORMAL
     Dosage: ONE DROP, RIGHT EYE, ONCE AT NIGHT TIME)
     Route: 047
     Dates: start: 20161224
  2. LATANOPROST. [Suspect]
     Active Substance: LATANOPROST
     Dosage: 125 UG, UNK
     Dates: start: 20161217
  3. REFRESH OPTIVE ADVANCED [Concomitant]
     Active Substance: CARBOXYMETHYLCELLULOSE SODIUM\GLYCERIN\POLYSORBATE 80
     Dosage: UNK UNK, AS NEEDED
     Dates: start: 201611

REACTIONS (2)
  - Pain [Recovered/Resolved]
  - Condition aggravated [Recovered/Resolved]

NARRATIVE: CASE EVENT DATE: 20161217
